FAERS Safety Report 18937316 (Version 1)
Quarter: 2021Q1

REPORT INFORMATION
  Report Type: Spontaneous
  Country: US (occurrence: US)
  Receive Date: 20210225
  Receipt Date: 20210225
  Transmission Date: 20210420
  Serious: No
  Sender: FDA-Public Use
  Company Number: US-ACCORD-170518

PATIENT
  Age: 24 Year
  Sex: Male

DRUGS (1)
  1. BUSPIRONE HYDROCHLORIDE. [Suspect]
     Active Substance: BUSPIRONE HYDROCHLORIDE
     Indication: PRODUCT USED FOR UNKNOWN INDICATION

REACTIONS (5)
  - Amnesia [Unknown]
  - Confusional state [Unknown]
  - Abdominal discomfort [Unknown]
  - Product substitution issue [Unknown]
  - Dizziness [Unknown]
